FAERS Safety Report 7818970-8 (Version None)
Quarter: 2011Q4

REPORT INFORMATION
  Report Type: 
  Country: None (occurrence: None)
  Receive Date: 20111018
  Receipt Date: 20111004
  Transmission Date: 20120403
  Serious: No
  Sender: FDA-Public Use
  Company Number: US-BAYER-2011-096384

PATIENT
  Age: 73 Year
  Sex: Male

DRUGS (4)
  1. OXYCODONE HCL [Concomitant]
  2. NAPROXEN [Concomitant]
     Dosage: UNK
  3. CIALIS [Concomitant]
  4. NEXAVAR [Suspect]
     Indication: HEPATIC NEOPLASM MALIGNANT
     Dosage: 400 MG, BID
     Dates: start: 20110420

REACTIONS (3)
  - OEDEMA PERIPHERAL [None]
  - ERYTHEMA [None]
  - PAIN [None]
